FAERS Safety Report 8463830-5 (Version None)
Quarter: 2012Q2

REPORT INFORMATION
  Report Type: 
  Country: None (occurrence: None)
  Receive Date: 20120625
  Receipt Date: 20120618
  Transmission Date: 20120825
  Serious: Yes (Hospitalization)
  Sender: FDA-Public Use
  Company Number: US-US-EMD SERONO, INC.-7141792

PATIENT
  Sex: Female

DRUGS (3)
  1. STEROIDS [Concomitant]
     Indication: MULTIPLE SCLEROSIS
     Route: 042
  2. REBIF [Suspect]
     Indication: MULTIPLE SCLEROSIS
     Route: 058
     Dates: start: 20020923
  3. GABAPENTIN [Concomitant]
     Indication: PAIN

REACTIONS (7)
  - WHITE BLOOD CELL COUNT INCREASED [None]
  - VOMITING [None]
  - SEPSIS [None]
  - DIPLEGIA [None]
  - PAIN [None]
  - DIARRHOEA [None]
  - HYPOAESTHESIA [None]
